FAERS Safety Report 20107948 (Version 1)
Quarter: 2021Q4

REPORT INFORMATION
  Report Type: Spontaneous
  Country: US (occurrence: US)
  Receive Date: 20211124
  Receipt Date: 20211124
  Transmission Date: 20220303
  Serious: No
  Sender: FDA-Public Use
  Company Number: US-ORGANON-O2111USA001367

PATIENT
  Age: 46 Year
  Sex: Female

DRUGS (1)
  1. COZAAR [Suspect]
     Active Substance: LOSARTAN POTASSIUM
     Indication: IgA nephropathy
     Dosage: 100 MILLIGRAM DAILY
     Route: 048

REACTIONS (1)
  - Drug ineffective [Unknown]
